FAERS Safety Report 5456045-6 (Version None)
Quarter: 2007Q3

REPORT INFORMATION
  Report Type: 
  Country: None (occurrence: None)
  Receive Date: 20070918
  Receipt Date: 20070430
  Transmission Date: 20080115
  Serious: Yes (Other)
  Sender: FDA-Public Use
  Company Number: US-ASTRAZENECA-2006UW24009

PATIENT
  Age: 23570 Day
  Sex: Female

DRUGS (6)
  1. SEROQUEL [Suspect]
     Route: 048
  2. ABILIFY [Concomitant]
  3. ZYPREXA [Concomitant]
  4. TRAZODONE HCL [Concomitant]
  5. ROZEREM [Concomitant]
  6. HYDROXYZINE [Concomitant]

REACTIONS (1)
  - PANCREATITIS [None]
